FAERS Safety Report 4308546-1 (Version None)
Quarter: 2004Q1

REPORT INFORMATION
  Report Type: 
  Country: None (occurrence: None)
  Receive Date: 20040227
  Receipt Date: 20030526
  Transmission Date: 20041129
  Serious: Yes (Other)
  Sender: FDA-Public Use
  Company Number: 2003022899

PATIENT
  Age: 25 Year
  Sex: Female
  Weight: 58.9676 kg

DRUGS (2)
  1. PROCARDIA [Suspect]
     Indication: PREMATURE LABOUR
     Dosage: UNK (BID), ORAL
     Route: 048
     Dates: start: 20030521
  2. PRENATAL VITAMINS (ASCORBIC ACID, BIOTIN, TOCOPHEROL, NICOTINIC ACID, [Concomitant]

REACTIONS (2)
  - FEELING ABNORMAL [None]
  - HYPOTENSION [None]
